FAERS Safety Report 6527991-7 (Version None)
Quarter: 2009Q4

REPORT INFORMATION
  Report Type: 
  Country: None (occurrence: None)
  Receive Date: 20091229
  Receipt Date: 20091220
  Transmission Date: 20100525
  Serious: Yes (Other)
  Sender: FDA-Public Use
  Company Number: 2009SP029081

PATIENT
  Sex: Female

DRUGS (2)
  1. NUVARING [Suspect]
     Indication: CONTRACEPTION
     Dosage: VAG
     Route: 067
     Dates: start: 20020101, end: 20061201
  2. NUVARING [Suspect]
     Indication: CONTRACEPTION
     Dosage: VAG
     Route: 067
     Dates: start: 20080301

REACTIONS (7)
  - BREAST PAIN [None]
  - CYSTITIS [None]
  - DRUG EXPOSURE BEFORE PREGNANCY [None]
  - MENOPAUSAL SYMPTOMS [None]
  - METRORRHAGIA [None]
  - NEPHROLITHIASIS [None]
  - PREGNANCY [None]
